FAERS Safety Report 9269063 (Version 1)
Quarter: 2013Q2

REPORT INFORMATION
  Report Type: Report from Study
  Country: AT (occurrence: AT)
  Receive Date: 20130503
  Receipt Date: 20130503
  Transmission Date: 20140414
  Serious: Yes (Hospitalization)
  Sender: FDA-Public Use
  Company Number: AT-ROCHE-1192194

PATIENT
  Age: 65 Year
  Sex: Female
  Weight: 81 kg

DRUGS (5)
  1. CAPECITABINE [Suspect]
     Indication: RECTAL CANCER
     Dosage: LAST ADMINISTRED DOSE: 1800 MG  BID ON 14/FEB/2013
     Route: 048
     Dates: start: 20130103, end: 20130214
  2. BEVACIZUMAB [Suspect]
     Indication: RECTAL CANCER
     Dosage: LAST ADMINISTRED DOSE: 636 MG ONCE ON 31/JAN/2013
     Route: 042
     Dates: start: 20130103, end: 20130131
  3. OXALIPLATIN [Suspect]
     Indication: RECTAL CANCER
     Dosage: LAST ADMINISTRED DOSE: 240 MG ONCE ON 31/JAN/2013
     Route: 042
     Dates: start: 20130103
  4. EUTHYROX [Concomitant]
     Route: 048
  5. SELOKEN RETARD PLUS [Concomitant]
     Route: 048

REACTIONS (3)
  - Febrile neutropenia [Recovered/Resolved]
  - Diarrhoea infectious [Recovered/Resolved]
  - Stomatitis [Recovered/Resolved]
